FAERS Safety Report 7966874-2 (Version None)
Quarter: 2011Q4

REPORT INFORMATION
  Report Type: 
  Country: None (occurrence: None)
  Receive Date: 20111209
  Receipt Date: 20111206
  Transmission Date: 20120403
  Serious: Yes (Other)
  Sender: FDA-Public Use
  Company Number: US-PFIZER INC-2011298721

PATIENT
  Age: 61 Year
  Sex: Female

DRUGS (14)
  1. VIIBRYD [Suspect]
     Indication: DEPRESSION
     Dosage: UNK
     Dates: start: 20110929, end: 20111012
  2. NORVASC [Concomitant]
     Indication: HYPERTENSION
     Dosage: UNK
  3. CALCIUM [Concomitant]
     Dosage: UNK
  4. HYDROCHLOROTHIAZIDE [Concomitant]
     Indication: HYPERTENSION
     Dosage: UNK
  5. PRILOSEC [Concomitant]
     Indication: GASTROOESOPHAGEAL REFLUX DISEASE
     Dosage: UNK
  6. NITROGLYCERIN [Concomitant]
     Indication: HYPERTENSION
     Dosage: UNK
  7. SPIRIVA [Concomitant]
     Dosage: UNK
  8. COENZYME Q10 [Concomitant]
     Dosage: UNK
  9. XANAX [Concomitant]
     Indication: ANXIETY
     Dosage: 0.25 MG, 1X/DAY
  10. ASPIRIN [Concomitant]
     Dosage: UNK
  11. LOVAZA [Concomitant]
     Dosage: UNK
  12. ZOLOFT [Suspect]
     Dosage: UNK
  13. WELLBUTRIN [Concomitant]
     Dosage: UNK
  14. ATENOLOL [Concomitant]
     Indication: HYPERTENSION
     Dosage: UNK

REACTIONS (1)
  - HALLUCINATION [None]
